FAERS Safety Report 7527595-3 (Version None)
Quarter: 2011Q2

REPORT INFORMATION
  Report Type: 
  Country: None (occurrence: None)
  Receive Date: 20110607
  Receipt Date: 20110602
  Transmission Date: 20111010
  Serious: No
  Sender: FDA-Public Use
  Company Number: US-PFIZER INC-2011120509

PATIENT
  Sex: Female
  Weight: 56.689 kg

DRUGS (4)
  1. ALAVERT [Suspect]
     Indication: THROAT IRRITATION
  2. ALAVERT [Suspect]
     Indication: HYPERSENSITIVITY
     Dosage: 10 MG, DAILY
     Route: 048
     Dates: start: 20100820, end: 20100822
  3. ALAVERT [Suspect]
     Indication: NASAL DISCOMFORT
  4. ALAVERT [Suspect]
     Indication: EYE PRURITUS

REACTIONS (1)
  - DRUG INEFFECTIVE [None]
